FAERS Safety Report 7862210-0 (Version None)
Quarter: 2011Q4

REPORT INFORMATION
  Report Type: 
  Country: None (occurrence: None)
  Receive Date: 20111027
  Receipt Date: 20101105
  Transmission Date: 20120403
  Serious: No
  Sender: FDA-Public Use
  Company Number: US-AMGEN-TCS434825

PATIENT
  Age: 66 Year
  Sex: Female

DRUGS (5)
  1. LISINOPRIL [Concomitant]
  2. ATENOLOL [Concomitant]
  3. FELDINE [Concomitant]
  4. ZOCOR [Concomitant]
  5. ENBREL [Suspect]
     Indication: PSORIASIS
     Dosage: 50 MG, QWK
     Route: 058
     Dates: start: 20100601

REACTIONS (6)
  - CHILLS [None]
  - NASAL CONGESTION [None]
  - POOR QUALITY SLEEP [None]
  - HEADACHE [None]
  - NASOPHARYNGITIS [None]
  - RHINORRHOEA [None]
